FAERS Safety Report 5900164-4 (Version None)
Quarter: 2008Q3

REPORT INFORMATION
  Report Type: 
  Country: None (occurrence: None)
  Receive Date: 20080926
  Receipt Date: 20080822
  Transmission Date: 20090109
  Serious: Yes (Hospitalization)
  Sender: FDA-Public Use
  Company Number: DK-SANOFI-SYNTHELABO-A01200809711

PATIENT
  Age: 66 Year
  Sex: Female

DRUGS (4)
  1. SIMVASTATIN [Concomitant]
     Indication: BLOOD CHOLESTEROL INCREASED
     Dosage: UNK
     Route: 048
     Dates: end: 20080801
  2. NSAID [Concomitant]
     Indication: RHEUMATOID ARTHRITIS
     Dosage: UNK
     Route: 048
     Dates: end: 20080801
  3. PLAQUENIL [Suspect]
     Indication: RHEUMATOID ARTHRITIS
     Dosage: UNK
     Route: 048
     Dates: end: 20080815
  4. CIPRALEX [Concomitant]
     Indication: DRUG USE FOR UNKNOWN INDICATION
     Dosage: UNK
     Route: 048
     Dates: end: 20080801

REACTIONS (6)
  - BLOOD ALBUMIN DECREASED [None]
  - FOOD AVERSION [None]
  - HEPATIC ENZYME INCREASED [None]
  - HEPATIC NEOPLASM [None]
  - HEPATOMEGALY [None]
  - WEIGHT DECREASED [None]
